FAERS Safety Report 25550238 (Version 1)
Quarter: 2025Q3

REPORT INFORMATION
  Report Type: Spontaneous
  Country: JP (occurrence: JP)
  Receive Date: 20250714
  Receipt Date: 20250714
  Transmission Date: 20251020
  Serious: Yes (Other)
  Sender: BIOVITRUM
  Company Number: JP-BIOVITRUM-2025-JP-009549

PATIENT

DRUGS (1)
  1. AVATROMBOPAG [Suspect]
     Active Substance: AVATROMBOPAG
     Indication: Immune thrombocytopenia
     Route: 048

REACTIONS (2)
  - Off label use [Unknown]
  - Autoimmune hepatitis [Unknown]
